FAERS Safety Report 9882861 (Version 2)
Quarter: 2014Q2

REPORT INFORMATION
  Report Type: Report from Study
  Country: US (occurrence: US)
  Receive Date: 20140207
  Receipt Date: 20140513
  Transmission Date: 20141212
  Serious: Yes (Hospitalization)
  Sender: FDA-Public Use
  Company Number: US-JNJFOC-20140115702

PATIENT
  Age: 37 Year
  Sex: Female
  Weight: 65.4 kg

DRUGS (2)
  1. PARACETAMOL [Suspect]
     Route: 065
  2. PARACETAMOL [Suspect]
     Indication: ABDOMINAL PAIN
     Dosage: 500MG PER TABLET; FOR 3 DAYS
     Route: 065

REACTIONS (2)
  - Hepatic necrosis [Recovered/Resolved]
  - Toxicity to various agents [Recovered/Resolved]
